FAERS Safety Report 7270768-8 (Version None)
Quarter: 2011Q1

REPORT INFORMATION
  Report Type: 
  Country: None (occurrence: None)
  Receive Date: 20110202
  Receipt Date: 20110128
  Transmission Date: 20110831
  Serious: Yes (Other)
  Sender: FDA-Public Use
  Company Number: GR-PFIZER INC-2010174414

PATIENT
  Age: 59 Year
  Sex: Male

DRUGS (8)
  1. THALIDOMIDE [Suspect]
     Indication: MULTIPLE MYELOMA
  2. LENALIDOMIDE [Suspect]
     Indication: MULTIPLE MYELOMA
  3. DOXORUBICIN HCL [Suspect]
     Indication: MULTIPLE MYELOMA
  4. VINCRISTINE [Suspect]
     Indication: MULTIPLE MYELOMA
  5. RIBOMUSTIN [Suspect]
     Indication: MULTIPLE MYELOMA
  6. METHOTREXATE SODIUM [Suspect]
     Indication: MULTIPLE MYELOMA
  7. BORTEZOMIB [Suspect]
     Indication: MULTIPLE MYELOMA
  8. DEXAMETHASONE [Suspect]
     Indication: MULTIPLE MYELOMA

REACTIONS (1)
  - NEUROPATHY PERIPHERAL [None]
